FAERS Safety Report 6370074-X (Version None)
Quarter: 2009Q3

REPORT INFORMATION
  Report Type: 
  Country: None (occurrence: None)
  Receive Date: 20090923
  Receipt Date: 20070424
  Transmission Date: 20100115
  Serious: Yes (Hospitalization, Other)
  Sender: FDA-Public Use
  Company Number: US-ASTRAZENECA-2006UW21123

PATIENT
  Age: 37 Year
  Sex: Female
  Weight: 82.1 kg

DRUGS (14)
  1. SEROQUEL [Suspect]
     Indication: MENTAL DISORDER
     Dosage: 100-800 MG
     Route: 048
     Dates: start: 20040724
  2. SEROQUEL [Suspect]
     Dosage: 200 TO 400 MG
     Route: 048
  3. HALDOL [Concomitant]
     Dates: start: 19940101
  4. RISPERDAL [Concomitant]
     Dates: start: 19940101
  5. THORAZINE [Concomitant]
     Dates: start: 19940101
  6. ZYPREXA [Concomitant]
     Dates: start: 19950101
  7. PAXIL [Concomitant]
  8. SINGULAIR [Concomitant]
     Route: 048
     Dates: start: 20041109
  9. FLOVENT [Concomitant]
     Dosage: STRENGTH 110 MCG 2 PUFFS BID
     Dates: start: 20041109
  10. PREDNISONE TAB [Concomitant]
     Dosage: 40-80 MG
     Route: 048
     Dates: start: 20040724
  11. ATROVENT [Concomitant]
     Dosage: STRENGTH 0.5 MG
     Dates: start: 20041109
  12. BENADRYL [Concomitant]
     Indication: HYPERSENSITIVITY
     Route: 048
     Dates: start: 20040724
  13. LASIX [Concomitant]
     Route: 048
     Dates: start: 20020731
  14. ALBUTEROL [Concomitant]
     Dosage: STRENGTH 5 MG
     Dates: start: 20040930

REACTIONS (3)
  - DIABETES MELLITUS [None]
  - DIABETES MELLITUS INADEQUATE CONTROL [None]
  - HYPERGLYCAEMIA [None]
